FAERS Safety Report 5404428-2 (Version None)
Quarter: 2007Q4

REPORT INFORMATION
  Report Type: 
  Country: None (occurrence: None)
  Receive Date: 20070711
  Receipt Date: 20060807
  Transmission Date: 20080405
  Serious: Yes (Hospitalization, Other)
  Sender: FDA-Public Use
  Company Number: 238342

PATIENT
  Age: 48 Year
  Sex: Female
  Weight: 58.5 kg

DRUGS (13)
  1. ACTIVELLA [Suspect]
     Indication: MENOPAUSAL SYMPTOMS
     Dates: start: 20020326, end: 20020601
  2. PREMPHASE (PREMARIN;CYCRIN 14/14) [Suspect]
     Indication: MENOPAUSAL SYMPTOMS
     Dosage: 0.625 MG/5 MG
     Dates: start: 19970101, end: 20000201
  3. PREMPRO [Suspect]
     Indication: MENOPAUSAL SYMPTOMS
     Dosage: 0.625 MG/ 5 MG
     Dates: start: 20000222, end: 20020325
  4. PREMARIN [Suspect]
     Indication: MENOPAUSAL SYMPTOMS
     Dates: start: 20020301, end: 20020301
  5. PREFEST [Concomitant]
  6. CLIMARA [Concomitant]
  7. MEVACO (LOVASTATIN) [Concomitant]
  8. NORVASC [Concomitant]
  9. LIPITOR [Concomitant]
  10. SERAX [Concomitant]
  11. SOMA [Concomitant]
  12. CLARINEX (PSEUDOEPHEDRINE SULFATE, LORATADINE) [Concomitant]
  13. ALLEGRA-D (PSEUDOEPHEDRINE HYDROCHLORIDE, FEXOFENADINE HYDROCHLORIDE) [Concomitant]

REACTIONS (1)
  - BREAST CANCER [None]
